FAERS Safety Report 7384636-4 (Version None)
Quarter: 2011Q1

REPORT INFORMATION
  Report Type: 
  Country: None (occurrence: None)
  Receive Date: 20110323
  Receipt Date: 20110316
  Transmission Date: 20110831
  Serious: Yes (Other)
  Sender: FDA-Public Use
  Company Number: DSA_45192_2011

PATIENT
  Age: 52 Year
  Sex: Female
  Weight: 63.5036 kg

DRUGS (3)
  1. ALLEGRA [Concomitant]
  2. WELLBUTRIN XL [Suspect]
     Indication: PSYCHOMOTOR HYPERACTIVITY
     Dosage: 300 MG, QD, ORAL
     Route: 048
     Dates: start: 20090101
  3. WELLBUTRIN XL [Suspect]
     Indication: ATTENTION DEFICIT/HYPERACTIVITY DISORDER
     Dosage: 300 MG, QD, ORAL
     Route: 048
     Dates: start: 20090101

REACTIONS (2)
  - HEPATIC ENZYME INCREASED [None]
  - GAMMA-GLUTAMYLTRANSFERASE INCREASED [None]
